FAERS Safety Report 7247699-2 (Version None)
Quarter: 2011Q1

REPORT INFORMATION
  Report Type: 
  Country: None (occurrence: None)
  Receive Date: 20110127
  Receipt Date: 20110124
  Transmission Date: 20110831
  Serious: Yes (Other)
  Sender: FDA-Public Use
  Company Number: US-AMGEN-USASP2010009681

PATIENT
  Age: 74 Year
  Sex: Male

DRUGS (9)
  1. NPLATE [Suspect]
     Indication: IDIOPATHIC THROMBOCYTOPENIC PURPURA
     Dosage: UNK
     Dates: start: 20090527
  2. PAXIL [Concomitant]
  3. DANAZOL [Concomitant]
     Indication: IDIOPATHIC THROMBOCYTOPENIC PURPURA
     Dosage: UNK
  4. METOPROLOL [Concomitant]
  5. PREDNISONE [Concomitant]
  6. NPLATE [Suspect]
     Dosage: 1 A?G, UNK
     Dates: start: 20101004, end: 20101101
  7. ALLOPURINOL [Concomitant]
  8. AMICAR [Concomitant]
  9. VICODIN [Concomitant]

REACTIONS (2)
  - DEEP VEIN THROMBOSIS [None]
  - DISEASE PROGRESSION [None]
